FAERS Safety Report 6308950-6 (Version None)
Quarter: 2009Q3

REPORT INFORMATION
  Report Type: 
  Country: None (occurrence: None)
  Receive Date: 20090813
  Receipt Date: 20090421
  Transmission Date: 20100115
  Serious: No
  Sender: FDA-Public Use
  Company Number: US-ALLERGAN-0905535US

PATIENT
  Sex: Female

DRUGS (4)
  1. COMBIGAN [Suspect]
     Indication: GLAUCOMA
     Dosage: UNK, BID
     Route: 047
     Dates: start: 20090201, end: 20090201
  2. COMBIGAN [Suspect]
     Dosage: UNK, QD
     Route: 047
     Dates: start: 20090201, end: 20090201
  3. SYNTHROID [Concomitant]
  4. VEXOL [Concomitant]

REACTIONS (2)
  - DIARRHOEA [None]
  - FLATULENCE [None]
